FAERS Safety Report 26056407 (Version 1)
Quarter: 2025Q4

REPORT INFORMATION
  Report Type: Spontaneous
  Country: US (occurrence: US)
  Receive Date: 20251118
  Receipt Date: 20251118
  Transmission Date: 20260118
  Serious: No
  Sender: AMNEAL
  Company Number: US-AMNEAL PHARMACEUTICALS-2024-AMRX-03663

PATIENT
  Sex: Female

DRUGS (3)
  1. ISOTRETINOIN [Suspect]
     Active Substance: ISOTRETINOIN
     Indication: Folliculitis
     Dosage: 30 MG, 2 TABLETS, BID
     Route: 065
     Dates: start: 202406
  2. ISOTRETINOIN [Suspect]
     Active Substance: ISOTRETINOIN
     Dosage: 30 MG
     Route: 065
     Dates: start: 202404
  3. ISOTRETINOIN [Suspect]
     Active Substance: ISOTRETINOIN
     Dosage: 40 MG
     Route: 065
     Dates: start: 202405

REACTIONS (1)
  - Flushing [Unknown]

NARRATIVE: CASE EVENT DATE: 20240903
